FAERS Safety Report 6186366-3 (Version None)
Quarter: 2009Q2

REPORT INFORMATION
  Report Type: 
  Country: None (occurrence: None)
  Receive Date: 20090511
  Receipt Date: 20090505
  Transmission Date: 20091009
  Serious: Yes (Hospitalization)
  Sender: FDA-Public Use
  Company Number: US-B.I. PHARMACEUTICALS,INC./RIDGEFIELD-2009-BP-04121BP

PATIENT
  Sex: Male

DRUGS (11)
  1. CATAPRES-TTS-1 [Suspect]
     Indication: HYPERTENSION
     Route: 061
     Dates: start: 20070601, end: 20080601
  2. CATAPRES-TTS-1 [Suspect]
     Route: 061
  3. CATAPRES-TTS-1 [Suspect]
     Route: 061
     Dates: start: 20090404
  4. CATAPRES [Concomitant]
     Route: 048
  5. TEKTURNA [Concomitant]
     Indication: HYPERTENSION
  6. LASIX [Concomitant]
     Indication: CORONARY ARTERY DISEASE
  7. VYTORIN [Concomitant]
     Indication: BLOOD CHOLESTEROL INCREASED
  8. CALCITRIOL [Concomitant]
     Indication: RENAL FAILURE
  9. PHOSLO [Concomitant]
     Indication: RENAL FAILURE
  10. NEXIUM [Concomitant]
     Indication: GASTROOESOPHAGEAL REFLUX DISEASE
  11. LOPRESSOR [Concomitant]
     Indication: BLOOD PRESSURE
     Dates: end: 20090309

REACTIONS (2)
  - CORONARY ARTERY BYPASS [None]
  - HYPERSENSITIVITY [None]
